FAERS Safety Report 10670697 (Version 1)
Quarter: 2014Q4

REPORT INFORMATION
  Report Type: Spontaneous
  Country: US (occurrence: None)
  Receive Date: 20141219
  Receipt Date: 20141219
  Transmission Date: 20150529
  Serious: Yes (Other)
  Sender: FDA-Public Use
  Company Number: 2014-US-010194

PATIENT
  Age: 39 Year
  Sex: Male

DRUGS (1)
  1. XYREM [Suspect]
     Active Substance: SODIUM OXYBATE
     Indication: NARCOLEPSY
     Route: 048
     Dates: start: 201003, end: 201004

REACTIONS (8)
  - Hallucination, auditory [None]
  - Schizophrenia [None]
  - Disease recurrence [None]
  - Overdose [None]
  - Suicidal behaviour [None]
  - Suicide attempt [None]
  - Depression [None]
  - Paranoia [None]
